FAERS Safety Report 11766766 (Version 1)
Quarter: 2015Q4

REPORT INFORMATION
  Report Type: Spontaneous
  Country: IT (occurrence: IT)
  Receive Date: 20151123
  Receipt Date: 20151123
  Transmission Date: 20160304
  Serious: Yes (Hospitalization)
  Sender: FDA-Public Use
  Company Number: IT-TEVA-609508ACC

PATIENT
  Age: 50 Year
  Sex: Female

DRUGS (4)
  1. CARBOLITHIUM - 150 MG CAPSULE RIGIDE - TEVA ITALIA S.R.L. [Suspect]
     Active Substance: LITHIUM CARBONATE
     Indication: DRUG ABUSE
     Dosage: 2 DF TOTAL
     Route: 048
     Dates: start: 20150705, end: 20150705
  2. TAVOR [Suspect]
     Active Substance: LORAZEPAM
     Indication: DRUG ABUSE
     Dosage: 18 MG TOTAL
     Route: 048
     Dates: start: 20150705, end: 20150705
  3. STILNOX - 10 MG COMPRESSE RIVESTITE CON FILM [Suspect]
     Active Substance: ZOLPIDEM TARTRATE
     Indication: DRUG ABUSE
     Dosage: 2 DF TOTAL
     Route: 048
     Dates: start: 20150705, end: 20150705
  4. XANAX [Suspect]
     Active Substance: ALPRAZOLAM
     Indication: DRUG ABUSE
     Dosage: 6 DF TOTAL
     Route: 048
     Dates: start: 20150705, end: 20150705

REACTIONS (4)
  - Self injurious behaviour [Recovered/Resolved]
  - Mood altered [Recovered/Resolved]
  - Sluggishness [Recovered/Resolved]
  - Drug abuse [Recovered/Resolved]

NARRATIVE: CASE EVENT DATE: 20150705
